FAERS Safety Report 16154053 (Version 1)
Quarter: 2019Q2

REPORT INFORMATION
  Report Type: Spontaneous
  Country: JP (occurrence: JP)
  Receive Date: 20190403
  Receipt Date: 20190403
  Transmission Date: 20190711
  Serious: Yes (Hospitalization, Other)
  Sender: FDA-Public Use
  Company Number: JP-ALLERGAN-1914530US

PATIENT
  Sex: Female

DRUGS (6)
  1. ALPHAGAN P [Suspect]
     Active Substance: BRIMONIDINE TARTRATE
     Indication: NORMAL TENSION GLAUCOMA
     Dosage: UNK, BID
     Route: 047
     Dates: start: 201903
  2. VISUALIN [Suspect]
     Active Substance: DEXAMETHASONE
     Indication: HYPERSENSITIVITY
     Route: 047
  3. TAPROS [Concomitant]
     Dosage: UNK
  4. ALPHAGAN P [Suspect]
     Active Substance: BRIMONIDINE TARTRATE
     Dosage: UNK, BID
     Route: 047
  5. FML [Suspect]
     Active Substance: FLUOROMETHOLONE
     Indication: HYPERSENSITIVITY
     Route: 047
  6. ANTI ALLERGIC AGENTS [Concomitant]
     Active Substance: UNSPECIFIED INGREDIENT
     Indication: HYPERSENSITIVITY

REACTIONS (5)
  - Pneumonia [Recovered/Resolved]
  - Nausea [Recovered/Resolved]
  - Somnolence [Not Recovered/Not Resolved]
  - Asthenia [Recovered/Resolved]
  - Dizziness [Unknown]
